FAERS Safety Report 7306491-0 (Version None)
Quarter: 2011Q1

REPORT INFORMATION
  Report Type: 
  Country: None (occurrence: None)
  Receive Date: 20110222
  Receipt Date: 20110215
  Transmission Date: 20110831
  Serious: Yes (Hospitalization)
  Sender: FDA-Public Use
  Company Number: US-US-EMD SERONO, INC.-7041412

PATIENT
  Sex: Male
  Weight: 95 kg

DRUGS (4)
  1. REBIF [Suspect]
     Indication: MULTIPLE SCLEROSIS
     Route: 058
     Dates: start: 20070915
  2. ARTANE [Concomitant]
     Indication: TREMOR
  3. PROPRANOLOL [Concomitant]
     Indication: TREMOR
  4. IBUPROFEN [Concomitant]
     Indication: PREMEDICATION

REACTIONS (5)
  - DEHYDRATION [None]
  - INJECTION SITE DISCOLOURATION [None]
  - TREMOR [None]
  - INJECTION SITE NODULE [None]
  - WEIGHT DECREASED [None]
